FAERS Safety Report 7941996-0 (Version None)
Quarter: 2011Q4

REPORT INFORMATION
  Report Type: 
  Country: None (occurrence: None)
  Receive Date: 20111128
  Receipt Date: 20111117
  Transmission Date: 20120403
  Serious: Yes (Death, Life-Threatening, Hospitalization)
  Sender: FDA-Public Use
  Company Number: GB-TEVA-303891ISR

PATIENT
  Age: 64 Year
  Sex: Male

DRUGS (7)
  1. CLARITHROMYCIN [Suspect]
     Indication: LOWER RESPIRATORY TRACT INFECTION
     Dosage: HAD TAKEN ONE TABLET (UNKNOWN STRENGTH) IN THE EARLY AFTERNOON AND ONE IN THE EVENING
     Route: 065
  2. AMITRIPTYLINE HCL [Concomitant]
  3. DOXAZOSIN MESYLATE [Concomitant]
  4. BENDROFLUMETHIAZIDE [Concomitant]
  5. LEVOTHYROXINE SODIUM [Concomitant]
  6. LISINOPRIL [Concomitant]
  7. BETNOVATE [Concomitant]

REACTIONS (1)
  - ANAPHYLACTIC REACTION [None]
